FAERS Safety Report 5570415-7 (Version None)
Quarter: 2007Q4

REPORT INFORMATION
  Report Type: 
  Country: None (occurrence: None)
  Receive Date: 20071221
  Receipt Date: 20071211
  Transmission Date: 20080405
  Serious: Yes (Other)
  Sender: FDA-Public Use
  Company Number: PHBS2007BR20884

PATIENT
  Age: 93 Year
  Sex: Male
  Weight: 60 kg

DRUGS (3)
  1. DIOVAN HCT [Suspect]
     Indication: HYPERTENSION
     Dosage: VALS 80 / HCT 12.5 MG/DAY
     Route: 048
     Dates: start: 20020101, end: 20071206
  2. METAMUCIL [Concomitant]
     Indication: CONSTIPATION
     Route: 048
     Dates: start: 20071001
  3. LIPITOR [Concomitant]
     Dosage: 20 MG/DAY
     Route: 048
     Dates: start: 20070901

REACTIONS (2)
  - POLLAKIURIA [None]
  - PROSTATE CANCER [None]
